FAERS Safety Report 25855290 (Version 2)
Quarter: 2025Q4

REPORT INFORMATION
  Report Type: Spontaneous
  Country: MY (occurrence: MY)
  Receive Date: 20250927
  Receipt Date: 20251007
  Transmission Date: 20260119
  Serious: Yes (Death)
  Sender: JOHNSON AND JOHNSON
  Company Number: MY-JNJFOC-20250942108

PATIENT
  Sex: Male

DRUGS (1)
  1. DARZALEX FASPRO [Suspect]
     Active Substance: DARATUMUMAB\HYALURONIDASE-FIHJ
     Indication: Plasma cell myeloma
     Route: 065
     Dates: start: 20250815

REACTIONS (1)
  - Death [Fatal]
